FAERS Safety Report 10428102 (Version 1)
Quarter: 2014Q3

REPORT INFORMATION
  Report Type: Spontaneous
  Country: US (occurrence: US)
  Receive Date: 20140903
  Receipt Date: 20140903
  Transmission Date: 20150326
  Serious: Yes (Hospitalization)
  Sender: FDA-Public Use
  Company Number: US-GILEAD-2014-0113856

PATIENT
  Age: 59 Year
  Sex: Female

DRUGS (14)
  1. LETAIRIS [Suspect]
     Active Substance: AMBRISENTAN
     Indication: PRODUCT USED FOR UNKNOWN INDICATION
     Route: 065
     Dates: start: 20140819, end: 20140828
  2. IRON [Concomitant]
     Active Substance: IRON
  3. SPIRONOLACTONE. [Concomitant]
     Active Substance: SPIRONOLACTONE
  4. PROTONIX [Concomitant]
     Active Substance: PANTOPRAZOLE SODIUM
  5. ZOFRAN                             /00955302/ [Concomitant]
  6. TRAMADOL [Concomitant]
     Active Substance: TRAMADOL
  7. CLARITIN [Concomitant]
     Active Substance: LORATADINE
  8. DOCUSATE [Concomitant]
     Active Substance: DOCUSATE
  9. LACTULOSE. [Concomitant]
     Active Substance: LACTULOSE
  10. XIFAXAN [Concomitant]
     Active Substance: RIFAXIMIN
  11. FUROSEMIDE. [Concomitant]
     Active Substance: FUROSEMIDE
  12. LANTUS [Concomitant]
     Active Substance: INSULIN GLARGINE
  13. COREG [Concomitant]
     Active Substance: CARVEDILOL
  14. HUMALOG [Concomitant]
     Active Substance: INSULIN LISPRO

REACTIONS (2)
  - Headache [Unknown]
  - Dyspnoea [Unknown]
